FAERS Safety Report 22351881 (Version 1)
Quarter: 2023Q2

REPORT INFORMATION
  Report Type: Spontaneous
  Country: US (occurrence: None)
  Receive Date: 20230522
  Receipt Date: 20230522
  Transmission Date: 20230721
  Serious: Yes (Disabling, Other)
  Sender: FDA-Public Use
  Company Number: None

PATIENT
  Age: 69 Year
  Sex: Female
  Weight: 88.45 kg

DRUGS (7)
  1. LEVOFLOXACIN [Suspect]
     Active Substance: LEVOFLOXACIN
     Indication: Pseudomonas infection
     Dates: start: 20230222
  2. Lisinopril-Hydrochlorothiazine [Concomitant]
  3. OMEPRAZOLE [Concomitant]
     Active Substance: OMEPRAZOLE
  4. VENLAFAXINE [Concomitant]
     Active Substance: VENLAFAXINE HYDROCHLORIDE
  5. ATORVASTATIN [Concomitant]
     Active Substance: ATORVASTATIN
  6. Triamicinolone [Concomitant]
  7. FLUOCINONIDE [Concomitant]

REACTIONS (17)
  - Arthralgia [None]
  - Arthralgia [None]
  - Mobility decreased [None]
  - Discomfort [None]
  - Joint stiffness [None]
  - Arthralgia [None]
  - Musculoskeletal stiffness [None]
  - Limb discomfort [None]
  - Joint lock [None]
  - Muscle discomfort [None]
  - Myalgia [None]
  - Joint stiffness [None]
  - Dysstasia [None]
  - Oedema peripheral [None]
  - Anxiety [None]
  - Balance disorder [None]
  - Muscular weakness [None]

NARRATIVE: CASE EVENT DATE: 20230226
